FAERS Safety Report 8904088 (Version 1)
Quarter: 2012Q4

REPORT INFORMATION
  Report Type: 
  Country: SE (occurrence: SE)
  Receive Date: 20121112
  Receipt Date: 20121112
  Transmission Date: 20130627
  Serious: Yes (Hospitalization)
  Sender: FDA-Public Use
  Company Number: SE-PFIZER INC-2012279281

PATIENT
  Age: 61 Year
  Sex: Female
  Weight: 82 kg

DRUGS (20)
  1. GENOTROPIN [Suspect]
     Indication: GROWTH HORMONE DEFICIENCY
     Dosage: 0.4 mg, 1x/day,7 injections/week
     Route: 058
     Dates: start: 20001019
  2. CORTISONE ACETATE [Concomitant]
     Indication: ACTH DECREASED
     Dosage: UNK
     Dates: start: 19860301
  3. GESTAPURAN [Concomitant]
     Indication: LUTEINISING HORMONE DEFICIENCY
     Dosage: UNK
     Dates: start: 19890101
  4. GESTAPURAN [Concomitant]
     Indication: FOLLICLE-STIMULATING HORMONE DEFICIENCY
  5. GESTAPURAN [Concomitant]
     Indication: HYPOGONADISM FEMALE
  6. VOLTAREN ^CIBA-GEIGY^ [Concomitant]
     Indication: SCIATICA
     Dosage: UNK
     Dates: start: 19960202
  7. CATAPRESAN [Concomitant]
     Indication: MIGRAINE
     Dosage: UNK
     Dates: start: 19910101
  8. KLIOGEST ^NOVO INDUSTRI^ [Concomitant]
     Indication: LUTEINISING HORMONE DEFICIENCY
     Dosage: UNK
     Dates: start: 19960709
  9. KLIOGEST ^NOVO INDUSTRI^ [Concomitant]
     Indication: FOLLICLE-STIMULATING HORMONE DEFICIENCY
  10. KLIOGEST ^NOVO INDUSTRI^ [Concomitant]
     Indication: HYPOGONADISM FEMALE
  11. CORTAL [Concomitant]
     Indication: ACTH DECREASED
     Dosage: UNK
     Dates: start: 19860301
  12. IMIGRAN [Concomitant]
     Indication: HEADACHE
     Dosage: UNK
     Dates: start: 19970228
  13. CIPRAMIL [Concomitant]
     Indication: DEPRESSIVE DISORDER
     Dosage: UNK
     Dates: start: 19980520
  14. LORABID [Concomitant]
     Indication: RESPIRATORY INFECTION
     Dosage: UNK
     Dates: start: 19980511
  15. DOXYFERM [Concomitant]
     Indication: RESPIRATORY INFECTION
     Dosage: UNK
     Dates: start: 19980525
  16. KAVEPENIN [Concomitant]
     Indication: ACUTE TONSILLITIS
     Dosage: UNK
     Dates: start: 19970310
  17. BRICANYL [Concomitant]
     Indication: ASTHMA
     Dosage: UNK
     Dates: start: 19880301
  18. HYDROCORTISONE [Concomitant]
     Indication: ACTH DECREASED
     Dosage: UNK
     Dates: start: 20040325
  19. LEVOTHYROXINE [Concomitant]
     Indication: TSH DECREASED
     Dosage: UNK
     Dates: start: 19861001
  20. LEVOTHYROXINE [Concomitant]
     Indication: PRIMARY HYPOTHYROIDISM

REACTIONS (1)
  - Limb discomfort [Unknown]
